FAERS Safety Report 24277404 (Version 1)
Quarter: 2024Q3

REPORT INFORMATION
  Report Type: Spontaneous
  Country: US (occurrence: US)
  Receive Date: 20240903
  Receipt Date: 20240903
  Transmission Date: 20241017
  Serious: No
  Sender: SANOFI AVENTIS
  Company Number: US-SANOFI-02191857

PATIENT
  Age: 48 Year
  Sex: Female
  Weight: 120 kg

DRUGS (2)
  1. FABRAZYME [Suspect]
     Active Substance: AGALSIDASE BETA
     Indication: Fabry^s disease
     Dosage: 120 MG, QOW
     Dates: start: 20140613, end: 20240820
  2. SODIUM [Concomitant]
     Active Substance: SODIUM
     Dosage: UNK

REACTIONS (1)
  - Malaise [Unknown]

NARRATIVE: CASE EVENT DATE: 20240801
